FAERS Safety Report 10078402 (Version 1)
Quarter: 2014Q2

REPORT INFORMATION
  Report Type: Spontaneous
  Country: US (occurrence: None)
  Receive Date: 20140401
  Receipt Date: 20140401
  Transmission Date: 20141212
  Serious: Yes (Other)
  Sender: FDA-Public Use
  Company Number: HA12-017-AE

PATIENT
  Age: 68 Year
  Sex: Male
  Weight: 73.03 kg

DRUGS (1)
  1. METFORMIN HCL [Suspect]
     Dosage: 1 TABLET
     Route: 048
     Dates: start: 201107, end: 20120108

REACTIONS (5)
  - Pain [None]
  - Lactic acidosis [None]
  - Myalgia [None]
  - Myalgia [None]
  - Gait disturbance [None]
